FAERS Safety Report 4727178-4 (Version None)
Quarter: 2005Q3

REPORT INFORMATION
  Report Type: 
  Country: None (occurrence: None)
  Receive Date: 20050726
  Receipt Date: 20050726
  Transmission Date: 20060218
  Serious: Yes (Other)
  Sender: FDA-Public Use
  Company Number: None

PATIENT
  Age: 61 Year
  Sex: Male
  Weight: 96.2 kg

DRUGS (10)
  1. NIASPAN [Suspect]
  2. RAMIPRIL [Concomitant]
  3. NITROGLYCERIN [Concomitant]
  4. FLUVASTATIN NA [Concomitant]
  5. FEXOFENADINE HCL [Concomitant]
  6. ATENOLOL [Concomitant]
  7. ALBUTEROL SULFATE AND IPRATROPIUM BROMIDE [Concomitant]
  8. FLUNISOLIDE [Concomitant]
  9. FORMOTEROL FUMARATE [Concomitant]
  10. NAPROXEN [Concomitant]

REACTIONS (1)
  - MYALGIA [None]
